FAERS Safety Report 14305000 (Version 1)
Quarter: 2017Q4

REPORT INFORMATION
  Report Type: Spontaneous
  Country: US (occurrence: US)
  Receive Date: 20171219
  Receipt Date: 20171219
  Transmission Date: 20180321
  Serious: Yes (Other)
  Sender: FDA-Public Use
  Company Number: US-OTSUKA-15853963

PATIENT
  Age: 39 Year
  Sex: Male
  Weight: 97 kg

DRUGS (2)
  1. ABILIFY [Suspect]
     Active Substance: ARIPIPRAZOLE
     Indication: BIPOLAR DISORDER
     Dosage: 2 1/2 TO 3YRS AGO TRETMENT IS STARTED
     Route: 065
     Dates: start: 2009, end: 201102
  2. LISINOPRIL. [Concomitant]
     Active Substance: LISINOPRIL
     Indication: PRODUCT USED FOR UNKNOWN INDICATION
     Dosage: UNK
     Route: 065

REACTIONS (3)
  - Obsessive-compulsive disorder [Unknown]
  - Mania [Unknown]
  - Mental impairment [Unknown]

NARRATIVE: CASE EVENT DATE: 200912
